FAERS Safety Report 15125803 (Version 1)
Quarter: 2018Q3

REPORT INFORMATION
  Report Type: Spontaneous
  Country: US (occurrence: US)
  Receive Date: 20180710
  Receipt Date: 20180710
  Transmission Date: 20181010
  Serious: No
  Sender: FDA-Public Use
  Company Number: US-SHIRE-US201824273

PATIENT
  Age: 83 Year
  Sex: Female
  Weight: 70.3 kg

DRUGS (1)
  1. XIIDRA [Suspect]
     Active Substance: LIFITEGRAST
     Indication: DRY EYE
     Dosage: 1 GTT, 2X/DAY:BID
     Route: 047
     Dates: start: 20180518, end: 20180603

REACTIONS (4)
  - Vision blurred [Recovered/Resolved]
  - Instillation site irritation [Recovered/Resolved]
  - Headache [Not Recovered/Not Resolved]
  - Instillation site reaction [Recovered/Resolved]

NARRATIVE: CASE EVENT DATE: 20180520
